FAERS Safety Report 9351202 (Version 1)
Quarter: 2013Q2

REPORT INFORMATION
  Report Type: Spontaneous
  Country: US (occurrence: US)
  Receive Date: 20130617
  Receipt Date: 20130617
  Transmission Date: 20140414
  Serious: Yes (Other)
  Sender: FDA-Public Use
  Company Number: US-PFIZER INC-2013178664

PATIENT
  Age: 79 Year
  Sex: Female

DRUGS (6)
  1. CELEBREX [Suspect]
     Indication: ARTHRALGIA
     Dosage: 200 MG TWO TIMES A DAY
     Route: 048
     Dates: start: 1984
  2. CELEBREX [Suspect]
     Indication: ARTHRITIS
  3. ASPIRIN [Concomitant]
     Dosage: 81 MG
  4. DIOVANE [Concomitant]
     Dosage: 320 MG ONCE A DAY
  5. PREDNISONE [Concomitant]
     Dosage: 5 MG TABLET ONCE A DAY
  6. TYLENOL W/CODEINE NO. 3 [Concomitant]
     Dosage: 300/30 MG, AS NEEDED

REACTIONS (1)
  - Osteoarthritis [Unknown]
